FAERS Safety Report 10267363 (Version 2)
Quarter: 2014Q2

REPORT INFORMATION
  Report Type: Spontaneous
  Country: CH (occurrence: CH)
  Receive Date: 20140630
  Receipt Date: 20140630
  Transmission Date: 20141212
  Serious: Yes (Death, Hospitalization)
  Sender: FDA-Public Use
  Company Number: CH-ASTELLAS-2014EU005162

PATIENT
  Age: 65 Year
  Sex: Male

DRUGS (10)
  1. PROGRAF [Suspect]
     Indication: IMMUNOSUPPRESSION
     Route: 065
  2. CYCLOSPORIN [Suspect]
     Indication: IMMUNOSUPPRESSION
     Dosage: 300 MG, DAILY
     Route: 065
  3. ANTITHYMOCYTE IMMUNOGLOBULIN [Suspect]
     Indication: PROPHYLAXIS AGAINST GRAFT VERSUS HOST DISEASE
     Dosage: UNK UNK, UNKNOWN FREQ.
     Route: 065
  4. METHOTREXATE [Suspect]
     Indication: PROPHYLAXIS AGAINST GRAFT VERSUS HOST DISEASE
     Dosage: 30 MG, DAILY
     Route: 065
  5. PREDNISONE [Suspect]
     Indication: IMMUNOSUPPRESSION
     Dosage: 2 MG/KG, DAILY
     Route: 065
  6. PREDNISONE [Suspect]
     Dosage: 0.4 MG/KG, DAILY
     Route: 065
  7. PREDNISONE [Suspect]
     Dosage: 2 MG/KG, DAILY
     Route: 065
  8. BUDENOFALK [Suspect]
     Indication: IMMUNOSUPPRESSION
     Route: 065
  9. VALGANCICLOVIR [Concomitant]
     Indication: ANTIVIRAL TREATMENT
     Dosage: UNK UNK, UNKNOWN FREQ.
     Route: 065
  10. GANCICLOVIR [Concomitant]
     Indication: CYTOMEGALOVIRUS INFECTION
     Route: 042

REACTIONS (3)
  - Haemolytic uraemic syndrome [Fatal]
  - Gastroenteritis Escherichia coli [Unknown]
  - Off label use [Unknown]
